FAERS Safety Report 20167062 (Version 1)
Quarter: 2021Q4

REPORT INFORMATION
  Report Type: Spontaneous
  Country: FR (occurrence: FR)
  Receive Date: 20211209
  Receipt Date: 20211209
  Transmission Date: 20220303
  Serious: Yes (Other)
  Sender: FDA-Public Use
  Company Number: None

PATIENT
  Age: 16 Year
  Sex: Male

DRUGS (3)
  1. TRAMADOL [Suspect]
     Active Substance: TRAMADOL
     Indication: Product used for unknown indication
     Dosage: 2 SPECIALTY HOSPITAL PRESCRIPTIONS WITH TRAMADOL: TOPALGIC (2 GEL EVERY 6H FOR 5 DAYS) AND IXPRIM (1
     Route: 048
  2. LYRICA [Concomitant]
     Active Substance: PREGABALIN
     Dosage: REPORT OF 2 ABUSES ON 06/22 AND 06/27 LEADING TO HOSPITALIZATION WITHOUT FURTHER INFORMATION
     Route: 065
  3. RIVOTRIL [Concomitant]
     Active Substance: CLONAZEPAM
     Dosage: WITHOUT FURTHER INFORMATION
     Route: 065
     Dates: start: 20210627

REACTIONS (2)
  - Intentional product misuse [Not Recovered/Not Resolved]
  - Drug dependence [Not Recovered/Not Resolved]
